FAERS Safety Report 21508603 (Version 2)
Quarter: 2022Q4

REPORT INFORMATION
  Report Type: Report from Study
  Country: US (occurrence: US)
  Receive Date: 20221026
  Receipt Date: 20221031
  Transmission Date: 20230113
  Serious: Yes (Other)
  Sender: FDA-Public Use
  Company Number: US-HORIZON THERAPEUTICS-HZN-2022-008155

PATIENT

DRUGS (4)
  1. KRYSTEXXA [Suspect]
     Active Substance: PEGLOTICASE
     Indication: Product used for unknown indication
     Dosage: 1ST INFUSION
     Route: 042
     Dates: start: 20220926
  2. KRYSTEXXA [Suspect]
     Active Substance: PEGLOTICASE
     Dosage: SECOND INFUSION
     Route: 042
     Dates: start: 202210
  3. KRYSTEXXA [Suspect]
     Active Substance: PEGLOTICASE
     Dosage: THIRD INFUSION
     Route: 042
     Dates: start: 20221024
  4. UNSPECIFIED INGREDIENT [Suspect]
     Active Substance: UNSPECIFIED INGREDIENT
     Indication: Product used for unknown indication
     Dosage: UNK
     Route: 065

REACTIONS (1)
  - Blood glucose increased [Recovering/Resolving]

NARRATIVE: CASE EVENT DATE: 20220101
